FAERS Safety Report 19906753 (Version 1)
Quarter: 2021Q4

REPORT INFORMATION
  Report Type: Spontaneous
  Country: US (occurrence: US)
  Receive Date: 20211001
  Receipt Date: 20211001
  Transmission Date: 20220304
  Serious: No
  Sender: FDA-Public Use
  Company Number: US-AMNEAL PHARMACEUTICALS-2021-AMRX-02261

PATIENT
  Age: 39 Year
  Sex: Female
  Weight: 99 kg

DRUGS (1)
  1. ELURYNG [Suspect]
     Active Substance: ETHINYL ESTRADIOL\ETONOGESTREL
     Indication: Contraception
     Dosage: 1 DOSAGE FORM, 1 /MONTH
     Route: 067
     Dates: start: 202104

REACTIONS (2)
  - Device breakage [Unknown]
  - No adverse event [Unknown]

NARRATIVE: CASE EVENT DATE: 20210607
